FAERS Safety Report 24639574 (Version 1)
Quarter: 2024Q4

REPORT INFORMATION
  Report Type: Spontaneous
  Country: CN (occurrence: CN)
  Receive Date: 20241119
  Receipt Date: 20241119
  Transmission Date: 20250115
  Serious: Yes (Hospitalization)
  Sender: EISAI
  Company Number: CN-Eisai-EC-2024-178728

PATIENT
  Age: 54 Year
  Sex: Female
  Weight: 55 kg

DRUGS (1)
  1. HALAVEN [Suspect]
     Active Substance: ERIBULIN MESYLATE
     Indication: Breast cancer
     Route: 042
     Dates: start: 20240920, end: 20240920

REACTIONS (1)
  - Myelosuppression [Recovering/Resolving]

NARRATIVE: CASE EVENT DATE: 20241009
